FAERS Safety Report 10082309 (Version 1)
Quarter: 2014Q2

REPORT INFORMATION
  Report Type: Spontaneous
  Country: US (occurrence: None)
  Receive Date: 20140414
  Receipt Date: 20140414
  Transmission Date: 20141212
  Serious: Yes (Other)
  Sender: FDA-Public Use
  Company Number: None

PATIENT
  Age: 48 Year
  Sex: Female
  Weight: 65.77 kg

DRUGS (2)
  1. ALPRAZOLAM [Suspect]
     Indication: ANXIETY
     Dosage: 1 PILL AS NEEDED BY MOUTH
     Route: 048
     Dates: start: 20140413
  2. ALPRAZOLAM [Suspect]
     Indication: PANIC ATTACK
     Dosage: 1 PILL AS NEEDED BY MOUTH
     Route: 048
     Dates: start: 20140413

REACTIONS (3)
  - Somnolence [None]
  - Anxiety [None]
  - Drug ineffective [None]
